FAERS Safety Report 7656142-0 (Version None)
Quarter: 2011Q3

REPORT INFORMATION
  Report Type: 
  Country: None (occurrence: None)
  Receive Date: 20110801
  Receipt Date: 20110728
  Transmission Date: 20111222
  Serious: Yes (Death)
  Sender: FDA-Public Use
  Company Number: 2011SP035344

PATIENT
  Age: 82 Year
  Sex: Male

DRUGS (3)
  1. JEVTANA KIT [Suspect]
     Indication: PROSTATE CANCER
     Dosage: 20 MG/M2;IV
     Route: 042
     Dates: start: 20110622, end: 20110623
  2. DEXAMETHASONE [Suspect]
     Indication: PRODUCT USED FOR UNKNOWN INDICATION
  3. NEUPOGEN [Concomitant]

REACTIONS (1)
  - GASTROINTESTINAL HAEMORRHAGE [None]
